FAERS Safety Report 4474611-1 (Version None)
Quarter: 2004Q4

REPORT INFORMATION
  Report Type: 
  Country: None (occurrence: None)
  Receive Date: 20041008
  Receipt Date: 20040826
  Transmission Date: 20050328
  Serious: Yes (Death)
  Sender: FDA-Public Use
  Company Number: CA_040907271

PATIENT
  Age: 57 Year
  Sex: Male

DRUGS (8)
  1. OLANZAPINE [Suspect]
     Indication: BIPOLAR DISORDER
     Dosage: 15 MG IN THE EVENING
     Dates: start: 20040422
  2. OLANZAPINE [Suspect]
     Indication: PSYCHOTIC DISORDER
     Dosage: 15 MG IN THE EVENING
     Dates: start: 20040422
  3. VALPROATE SODIUM [Suspect]
     Indication: BIPOLAR DISORDER
     Dosage: 1500 MG IN THE EVENING
  4. VALPROATE SODIUM [Suspect]
     Indication: PSYCHOTIC DISORDER
     Dosage: 1500 MG IN THE EVENING
  5. CLONAZEPAM [Concomitant]
  6. ZOPICLONE (ZOPICLONE) [Concomitant]
  7. LOSEC (OMEPRAZOLE MAGNESIUM) [Concomitant]
  8. VIOXX [Concomitant]

REACTIONS (8)
  - ANTICONVULSANT DRUG LEVEL INCREASED [None]
  - BLOOD CHLORIDE DECREASED [None]
  - BLOOD CHOLESTEROL INCREASED [None]
  - BLOOD SODIUM DECREASED [None]
  - FUNGAL RASH [None]
  - INSOMNIA [None]
  - LOW DENSITY LIPOPROTEIN INCREASED [None]
  - RESTLESS LEGS SYNDROME [None]
